FAERS Safety Report 5206016-X (Version None)
Quarter: 2007Q1

REPORT INFORMATION
  Report Type: 
  Country: None (occurrence: None)
  Receive Date: 20070108
  Receipt Date: 20061226
  Transmission Date: 20070707
  Serious: Yes (Hospitalization)
  Sender: FDA-Public Use
  Company Number: DEWYE954427DEC06

PATIENT
  Age: 40 Year
  Sex: Male

DRUGS (5)
  1. TREVILOR RETARD (VENLAFAXINE HYDROCHLORIDE, CAPSULE, EXTENDED RELEASE, [Suspect]
     Dosage: 7 TABLETS (OVERDOSE AMOUNT 1050 MG); ORAL
     Route: 048
     Dates: start: 20061224, end: 20061224
  2. ALCOHOL (ETHANOL, , 0) [Suspect]
     Dosage: AMOUNT UNKNOWN; ORAL
     Route: 048
     Dates: start: 20061224, end: 20061224
  3. LORAZEPAM [Suspect]
     Dosage: OVERDOSE AMOUNT 3MG; ORAL
     Dates: start: 20061224, end: 20061224
  4. LORMETHAZEPAM, (LORMETAZEPAM, , 0) [Suspect]
     Dosage: OVERDOSE AMOUNT 4 MG, ORAL
     Dates: start: 20061224, end: 20061224
  5. PIPAMPERONE (PIPAMPERONE, , 0) [Suspect]
     Dosage: OVERDOSE AMOUNT 20 ML, ORAL
     Route: 048
     Dates: start: 20061224, end: 20061224

REACTIONS (6)
  - ALCOHOL USE [None]
  - COORDINATION ABNORMAL [None]
  - DRUG ABUSER [None]
  - DYSARTHRIA [None]
  - MULTIPLE DRUG OVERDOSE INTENTIONAL [None]
  - TACHYCARDIA [None]
